FAERS Safety Report 10157890 (Version 1)
Quarter: 2014Q2

REPORT INFORMATION
  Report Type: Spontaneous
  Country: US (occurrence: US)
  Receive Date: 20140507
  Receipt Date: 20140507
  Transmission Date: 20141212
  Serious: No
  Sender: FDA-Public Use
  Company Number: US-TEVA-479513USA

PATIENT
  Age: 72 Year
  Sex: Female
  Weight: 127.12 kg

DRUGS (5)
  1. PROAIR HFA [Suspect]
     Indication: ASTHMA
     Dosage: 2 PUFFS EVERY 4-6 HOURS (USING EVERY 6 HOURS)
     Route: 055
  2. INSULIN DETEMIR [Concomitant]
     Indication: DIABETES MELLITUS
  3. INSULIN [Concomitant]
     Indication: DIABETES MELLITUS
  4. VERAPAMIL HYDROCHLORIDE [Concomitant]
     Indication: HYPERTENSION
  5. CODEINE COUGH SYRUP [Concomitant]
     Indication: COUGH

REACTIONS (5)
  - Chest discomfort [Not Recovered/Not Resolved]
  - Throat irritation [Not Recovered/Not Resolved]
  - Cough [Not Recovered/Not Resolved]
  - Blood triglycerides increased [Recovered/Resolved]
  - Malaise [Not Recovered/Not Resolved]
